FAERS Safety Report 16207818 (Version 2)
Quarter: 2019Q2

REPORT INFORMATION
  Report Type: Spontaneous
  Country: DE (occurrence: DE)
  Receive Date: 20190417
  Receipt Date: 20190517
  Transmission Date: 20190711
  Serious: Yes (Other)
  Sender: FDA-Public Use
  Company Number: DE-SA-2019SA103052

PATIENT
  Age: 79 Year
  Sex: Male

DRUGS (9)
  1. MAGNESIUM [Concomitant]
     Active Substance: MAGNESIUM
  2. NITRAZEPAM [Suspect]
     Active Substance: NITRAZEPAM
     Indication: INSOMNIA
     Dosage: 5 DF, UNK
     Route: 048
  3. NOVAMINSULFON [Concomitant]
     Active Substance: METAMIZOLE
  4. TAMSULOSIN HYDROCHLORIDE. [Suspect]
     Active Substance: TAMSULOSIN HYDROCHLORIDE
     Indication: BENIGN PROSTATIC HYPERPLASIA
     Dosage: UNK
     Route: 048
  5. RAMIPRIL. [Suspect]
     Active Substance: RAMIPRIL
     Indication: HYPERTENSION
     Dosage: UNK UNK, UNK
     Route: 048
  6. FENTANYL. [Suspect]
     Active Substance: FENTANYL
     Indication: KNEE OPERATION
     Dosage: 100 UG
     Route: 062
     Dates: start: 2009
  7. ASPIRIN. [Concomitant]
     Active Substance: ASPIRIN
  8. OMEPRAZOLE. [Concomitant]
     Active Substance: OMEPRAZOLE
  9. SEEBRI [Concomitant]
     Active Substance: GLYCOPYRROLATE

REACTIONS (5)
  - Drug dependence [Unknown]
  - Fatigue [Unknown]
  - Memory impairment [Unknown]
  - Dyspnoea [Unknown]
  - Feeling cold [Unknown]
